FAERS Safety Report 5324583-2 (Version None)
Quarter: 2007Q2

REPORT INFORMATION
  Report Type: 
  Country: None (occurrence: None)
  Receive Date: 20070509
  Receipt Date: 20070504
  Transmission Date: 20071010
  Serious: Yes (Death)
  Sender: FDA-Public Use
  Company Number: 2007SP003862

PATIENT
  Age: 44 Year
  Sex: Male
  Weight: 72 kg

DRUGS (3)
  1. TEMOZOLOMIDE (S-P) (TEMOZOLOMIDE) [Suspect]
     Indication: MALIGNANT GLIOMA
     Dosage: 180 MG;QD;PO
     Route: 048
     Dates: start: 20070114, end: 20070203
  2. DEXAMETHASONE 0.5MG TAB [Concomitant]
  3. LANSOPRAZOLE [Concomitant]

REACTIONS (5)
  - HAEMATOTOXICITY [None]
  - HEADACHE [None]
  - NEUTROPENIA [None]
  - RASH [None]
  - THROMBOCYTOPENIA [None]
